FAERS Safety Report 4576145-2 (Version None)
Quarter: 2005Q1

REPORT INFORMATION
  Report Type: 
  Country: None (occurrence: None)
  Receive Date: 20050201
  Receipt Date: 20050201
  Transmission Date: 20050727
  Serious: Yes (Life-Threatening, Hospitalization)
  Sender: FDA-Public Use
  Company Number: None

PATIENT
  Age: 15 Year
  Sex: Male
  Weight: 52.1637 kg

DRUGS (3)
  1. EFFEXOR XR [Suspect]
     Indication: DEPRESSION
     Dosage: 300MG   DAY    ORAL
     Route: 048
     Dates: start: 20040301, end: 20041130
  2. EFFEXOR XR [Suspect]
     Indication: POST-TRAUMATIC STRESS DISORDER
     Dosage: 300MG   DAY    ORAL
     Route: 048
     Dates: start: 20040301, end: 20041130
  3. EFFEXOR XR [Suspect]
     Indication: PSYCHOTIC DISORDER
     Dosage: 300MG   DAY    ORAL
     Route: 048
     Dates: start: 20040301, end: 20041130

REACTIONS (18)
  - ABNORMAL BEHAVIOUR [None]
  - ACTIVITIES OF DAILY LIVING IMPAIRED [None]
  - CONFUSIONAL STATE [None]
  - CRYING [None]
  - DEPRESSED LEVEL OF CONSCIOUSNESS [None]
  - DEPRESSED MOOD [None]
  - DEPRESSION [None]
  - DISORIENTATION [None]
  - INAPPROPRIATE AFFECT [None]
  - LACERATION [None]
  - LETHARGY [None]
  - MORBID THOUGHTS [None]
  - MYDRIASIS [None]
  - PERSONALITY CHANGE [None]
  - POST-TRAUMATIC STRESS DISORDER [None]
  - PSYCHOTIC DISORDER [None]
  - RESTLESSNESS [None]
  - SLEEP WALKING [None]
